FAERS Safety Report 7519076-8 (Version None)
Quarter: 2011Q2

REPORT INFORMATION
  Report Type: 
  Country: None (occurrence: None)
  Receive Date: 20110602
  Receipt Date: 20110527
  Transmission Date: 20111010
  Serious: Yes (Other)
  Sender: FDA-Public Use
  Company Number: CH-US-EMD SERONO, INC.-7048146

PATIENT
  Sex: Female

DRUGS (2)
  1. REBIF [Suspect]
     Indication: MULTIPLE SCLEROSIS
     Route: 058
     Dates: start: 20100801
  2. OPTIFEN [Concomitant]

REACTIONS (8)
  - MALIGNANT MELANOMA [None]
  - ATAXIA [None]
  - UPPER MOTOR NEURONE LESION [None]
  - COORDINATION ABNORMAL [None]
  - URGE INCONTINENCE [None]
  - NYSTAGMUS [None]
  - ANORECTAL DISORDER [None]
  - BLADDER DISORDER [None]
